FAERS Safety Report 5945374-5 (Version None)
Quarter: 2008Q4

REPORT INFORMATION
  Report Type: 
  Country: None (occurrence: None)
  Receive Date: 20081107
  Receipt Date: 20081028
  Transmission Date: 20090506
  Serious: Yes (Death, Life-Threatening, Hospitalization)
  Sender: FDA-Public Use
  Company Number: JP-PFIZER INC-2008063848

PATIENT
  Sex: Female
  Weight: 74 kg

DRUGS (13)
  1. SULPERAZON [Suspect]
     Indication: PYREXIA
     Dosage: DAILY DOSE:2GRAM-FREQ:DAILY
     Route: 042
     Dates: start: 20071001
  2. PONSTEL [Suspect]
     Dosage: DAILY DOSE:250MG-FREQ:QD
     Route: 048
     Dates: start: 20070925, end: 20070101
  3. CIPROXAN [Suspect]
     Dosage: DAILY DOSE:200MG-FREQ:DAILY
     Route: 048
     Dates: start: 20071001, end: 20071001
  4. TRANSAMIN [Suspect]
     Indication: UPPER RESPIRATORY TRACT INFLAMMATION
     Route: 048
     Dates: start: 20070925, end: 20070101
  5. MUCOSTA [Concomitant]
     Route: 048
     Dates: start: 20070925, end: 20070101
  6. CELESTAMINE TAB [Concomitant]
     Route: 048
     Dates: start: 20070925, end: 20070101
  7. CLARITHROMYCIN [Concomitant]
     Route: 048
     Dates: start: 20070925, end: 20070101
  8. URSO 250 [Concomitant]
     Indication: LIVER DISORDER
     Dosage: DAILY DOSE:600MG-FREQ:DAILY
     Route: 048
     Dates: start: 20071017, end: 20071107
  9. URSO 250 [Concomitant]
  10. BIOFERMIN R [Concomitant]
     Route: 048
     Dates: start: 20071001, end: 20071001
  11. SOLULACT [Concomitant]
     Route: 042
     Dates: start: 20071001, end: 20071001
  12. BUSCOPAN [Concomitant]
     Route: 048
     Dates: start: 20071001, end: 20071001
  13. CLARITIN [Concomitant]
     Route: 048
     Dates: start: 20071017, end: 20071107

REACTIONS (1)
  - HEPATITIS FULMINANT [None]
